FAERS Safety Report 16374590 (Version 4)
Quarter: 2019Q2

REPORT INFORMATION
  Report Type: Spontaneous
  Country: US (occurrence: US)
  Receive Date: 20190530
  Receipt Date: 20190607
  Transmission Date: 20190711
  Serious: Yes (Other)
  Sender: FDA-Public Use
  Company Number: US-CELGENEUS-USA-20190509442

PATIENT
  Age: 56 Year
  Sex: Female

DRUGS (1)
  1. OTEZLA [Suspect]
     Active Substance: APREMILAST
     Indication: PSORIASIS
     Dosage: STARTER PACK
     Route: 048
     Dates: start: 20190508, end: 20190522

REACTIONS (3)
  - Depression [Recovering/Resolving]
  - Suicidal ideation [Recovered/Resolved]
  - Bipolar disorder [Unknown]

NARRATIVE: CASE EVENT DATE: 201905
